FAERS Safety Report 17565804 (Version 1)
Quarter: 2020Q1

REPORT INFORMATION
  Report Type: Spontaneous
  Country: DE (occurrence: DE)
  Receive Date: 20200320
  Receipt Date: 20200320
  Transmission Date: 20200409
  Serious: Yes (Hospitalization)
  Sender: FDA-Public Use
  Company Number: DE-PFIZER INC-2020116446

PATIENT
  Age: 79 Year
  Sex: Male

DRUGS (6)
  1. PIRENZEPIN [Suspect]
     Active Substance: PIRENZEPINE
     Dosage: 50 MG, UNK (1-0-0-0)
  2. SIMVASTATIN. [Concomitant]
     Active Substance: SIMVASTATIN
     Dosage: 20 MG, UNK (0-0-1-0)
  3. PREGABALIN. [Suspect]
     Active Substance: PREGABALIN
     Dosage: 75 MG, UNK (1-0-1-0)
  4. TAMSULOSIN HYDROCHLORIDE. [Suspect]
     Active Substance: TAMSULOSIN HYDROCHLORIDE
     Dosage: 0.4 MG, UNK (1-0-0-0)
  5. MOVICOL [Concomitant]
     Active Substance: POLYETHYLENE GLYCOL 3350\POTASSIUM CHLORIDE\SODIUM BICARBONATE\SODIUM CHLORIDE
     Dosage: UNK (1-0-0-0)
  6. HYDROCHLOROTHIAZIDE/VALSARTAN [Concomitant]
     Active Substance: HYDROCHLOROTHIAZIDE\VALSARTAN
     Dosage: UNK (12.5 / 160 MG, 1-0-0-0)

REACTIONS (4)
  - Abdominal pain upper [Unknown]
  - Cough [Unknown]
  - Abdominal pain lower [Unknown]
  - Constipation [Unknown]
